FAERS Safety Report 15058800 (Version 2)
Quarter: 2018Q3

REPORT INFORMATION
  Report Type: Spontaneous
  Country: US (occurrence: US)
  Receive Date: 20180625
  Receipt Date: 20180720
  Transmission Date: 20181010
  Serious: No
  Sender: FDA-Public Use
  Company Number: US-ASTRAZENECA-2018SE78465

PATIENT

DRUGS (3)
  1. SEROQUEL XR [Suspect]
     Active Substance: QUETIAPINE FUMARATE
     Dosage: 500.0MG UNKNOWN
     Route: 048
  2. ATIVAN [Concomitant]
     Active Substance: LORAZEPAM
  3. STILNOX [Concomitant]
     Active Substance: ZOLPIDEM TARTRATE

REACTIONS (2)
  - Swelling [Unknown]
  - Sleep disorder [Unknown]
